FAERS Safety Report 17248425 (Version 1)
Quarter: 2020Q1

REPORT INFORMATION
  Report Type: Spontaneous
  Country: CN (occurrence: CN)
  Receive Date: 20200108
  Receipt Date: 20200108
  Transmission Date: 20200409
  Serious: Yes (Hospitalization)
  Sender: FDA-Public Use
  Company Number: CN-ASTRAZENECA-2020SE01693

PATIENT
  Age: 50 Year
  Sex: Male
  Weight: 46 kg

DRUGS (6)
  1. SODIUM CHLORIDE. [Concomitant]
     Active Substance: SODIUM CHLORIDE
     Dosage: 100 ML 0.3DAY
     Route: 041
     Dates: start: 20191217, end: 20191220
  2. SODIUM CHLORIDE. [Concomitant]
     Active Substance: SODIUM CHLORIDE
     Dosage: 250ML, 0.3DAY
     Route: 041
     Dates: start: 20191215, end: 20191217
  3. SODIUM CHLORIDE. [Concomitant]
     Active Substance: SODIUM CHLORIDE
     Dosage: 100 ML ONE DAY
     Route: 041
     Dates: start: 20191215, end: 20191221
  4. ESOMEPRAZOLE SODIUM. [Suspect]
     Active Substance: ESOMEPRAZOLE SODIUM
     Indication: GASTROINTESTINAL DISORDER PROPHYLAXIS
     Route: 041
     Dates: end: 20191221
  5. XIANXIN [Concomitant]
     Indication: INFECTION
     Route: 041
     Dates: start: 20191215, end: 20191217
  6. MEROPENEM. [Concomitant]
     Active Substance: MEROPENEM
     Indication: INFECTION
     Dosage: 1G 0.3DAY
     Route: 041
     Dates: start: 20191217, end: 20191220

REACTIONS (1)
  - Granulocytopenia [Recovering/Resolving]

NARRATIVE: CASE EVENT DATE: 20191220
